FAERS Safety Report 20012840 (Version 1)
Quarter: 2021Q4

REPORT INFORMATION
  Report Type: Spontaneous
  Country: GB (occurrence: GB)
  Receive Date: 20211029
  Receipt Date: 20211029
  Transmission Date: 20220303
  Serious: Yes (Hospitalization)
  Sender: FDA-Public Use
  Company Number: GB-SA-SAC20211012000137

PATIENT
  Age: 13 Year
  Sex: Female
  Weight: 54.5 kg

DRUGS (53)
  1. FUROSEMIDE [Suspect]
     Active Substance: FUROSEMIDE
     Indication: Product used for unknown indication
     Dosage: UNK; ;
     Route: 065
  2. FUROSEMIDE [Suspect]
     Active Substance: FUROSEMIDE
     Dosage: UNK; ;
     Route: 065
     Dates: start: 20201218
  3. FUROSEMIDE [Suspect]
     Active Substance: FUROSEMIDE
     Dosage: UNK; ;
     Route: 065
     Dates: start: 20210111
  4. FUROSEMIDE [Suspect]
     Active Substance: FUROSEMIDE
     Dosage: UNK; ;
     Route: 065
     Dates: start: 20210118
  5. FUROSEMIDE [Suspect]
     Active Substance: FUROSEMIDE
     Dosage: UNK; ;
     Route: 065
     Dates: start: 20210201
  6. FUROSEMIDE [Suspect]
     Active Substance: FUROSEMIDE
     Dosage: UNK; ;
     Route: 065
     Dates: start: 20210209
  7. CIPROFLOXACIN [Suspect]
     Active Substance: CIPROFLOXACIN
     Indication: Product used for unknown indication
     Route: 065
  8. CIPROFLOXACIN [Suspect]
     Active Substance: CIPROFLOXACIN
     Dosage: LAST DOSE INTAKE
     Route: 065
     Dates: start: 20201218
  9. CIPROFLOXACIN [Suspect]
     Active Substance: CIPROFLOXACIN
     Dosage: LAST DOSE INTAKE
     Route: 065
     Dates: start: 20210111
  10. CIPROFLOXACIN [Suspect]
     Active Substance: CIPROFLOXACIN
     Dosage: LAST DOSE INTAKE
     Route: 065
     Dates: start: 20210118
  11. CIPROFLOXACIN [Suspect]
     Active Substance: CIPROFLOXACIN
     Route: 065
     Dates: start: 20210201
  12. CIPROFLOXACIN [Suspect]
     Active Substance: CIPROFLOXACIN
     Dosage: UNK UNK, BID;
     Route: 065
     Dates: start: 20210209
  13. AZITHROMYCIN ANHYDROUS [Suspect]
     Active Substance: AZITHROMYCIN ANHYDROUS
     Indication: Product used for unknown indication
     Route: 065
  14. AZITHROMYCIN ANHYDROUS [Suspect]
     Active Substance: AZITHROMYCIN ANHYDROUS
     Route: 065
     Dates: start: 20201218
  15. AZITHROMYCIN ANHYDROUS [Suspect]
     Active Substance: AZITHROMYCIN ANHYDROUS
     Route: 065
     Dates: start: 20210111
  16. AZITHROMYCIN ANHYDROUS [Suspect]
     Active Substance: AZITHROMYCIN ANHYDROUS
     Route: 065
     Dates: start: 20210118
  17. AZITHROMYCIN ANHYDROUS [Suspect]
     Active Substance: AZITHROMYCIN ANHYDROUS
     Route: 065
     Dates: start: 20210201
  18. AZITHROMYCIN ANHYDROUS [Suspect]
     Active Substance: AZITHROMYCIN ANHYDROUS
     Dosage: UNK UNK, BID;
     Route: 065
     Dates: start: 20210209
  19. DEXAMETHASONE [Suspect]
     Active Substance: DEXAMETHASONE
     Indication: Product used for unknown indication
     Dosage: UNK; ;
     Route: 065
     Dates: start: 20201209
  20. DEXAMETHASONE [Suspect]
     Active Substance: DEXAMETHASONE
     Dosage: UNK; ;
     Route: 065
     Dates: start: 20210111
  21. DEXAMETHASONE [Suspect]
     Active Substance: DEXAMETHASONE
     Dosage: UNK; ;
     Route: 065
     Dates: start: 20210118
  22. DOCETAXEL [Suspect]
     Active Substance: DOCETAXEL
     Indication: Synovial sarcoma
     Dosage: 117 MG, QCY; CYCLICAL
     Route: 042
     Dates: start: 20201209, end: 20210310
  23. GEMCITABINE HYDROCHLORIDE [Suspect]
     Active Substance: GEMCITABINE HYDROCHLORIDE
     Indication: Synovial sarcoma
     Dosage: 1404 MG, QCY; CYCLICAL
     Route: 042
     Dates: start: 20201201, end: 20210310
  24. FILGRASTIM [Suspect]
     Active Substance: FILGRASTIM
     Indication: Product used for unknown indication
     Dosage: UNK; ;
     Route: 065
     Dates: start: 20201211
  25. FILGRASTIM [Suspect]
     Active Substance: FILGRASTIM
     Dosage: UNK; ;
     Route: 065
     Dates: start: 20201218
  26. FILGRASTIM [Suspect]
     Active Substance: FILGRASTIM
     Dosage: UNK; ;
     Route: 065
     Dates: start: 20210111
  27. FILGRASTIM [Suspect]
     Active Substance: FILGRASTIM
     Dosage: UNK; ;
     Route: 065
     Dates: start: 20210118
  28. FILGRASTIM [Suspect]
     Active Substance: FILGRASTIM
     Dosage: UNK; ;
     Route: 065
     Dates: start: 20210201
  29. MEROPENEM [Suspect]
     Active Substance: MEROPENEM
     Indication: Product used for unknown indication
     Route: 065
  30. MEROPENEM [Suspect]
     Active Substance: MEROPENEM
     Route: 065
     Dates: start: 20201218
  31. MEROPENEM [Suspect]
     Active Substance: MEROPENEM
     Route: 065
     Dates: start: 20210111
  32. MEROPENEM [Suspect]
     Active Substance: MEROPENEM
     Route: 065
     Dates: start: 20210118
  33. MEROPENEM [Suspect]
     Active Substance: MEROPENEM
     Dosage: UNK; ;
     Route: 065
     Dates: start: 20210128
  34. MEROPENEM [Suspect]
     Active Substance: MEROPENEM
     Route: 065
     Dates: start: 20210201
  35. TAZOBACTAM SODIUM [Suspect]
     Active Substance: TAZOBACTAM SODIUM
     Indication: Product used for unknown indication
     Dosage: UNK; ;
     Route: 065
     Dates: start: 20201218
  36. TAZOBACTAM SODIUM [Suspect]
     Active Substance: TAZOBACTAM SODIUM
     Dosage: UNK; ;
     Route: 065
     Dates: start: 20210111
  37. TAZOBACTAM SODIUM [Suspect]
     Active Substance: TAZOBACTAM SODIUM
     Dosage: UNK; ;
     Route: 065
     Dates: start: 20210118
  38. TAZOBACTAM SODIUM [Suspect]
     Active Substance: TAZOBACTAM SODIUM
     Dosage: UNK; ;
     Route: 065
     Dates: start: 20210128
  39. TAZOBACTAM SODIUM [Suspect]
     Active Substance: TAZOBACTAM SODIUM
     Dosage: UNK; ;
     Route: 065
     Dates: start: 20210201
  40. TAZOBACTAM SODIUM [Suspect]
     Active Substance: TAZOBACTAM SODIUM
     Dosage: UNK; ;
     Route: 065
  41. PIPERACILLIN SODIUM [Suspect]
     Active Substance: PIPERACILLIN SODIUM
     Indication: Product used for unknown indication
     Dosage: UNK; ;
     Route: 065
     Dates: start: 20201218
  42. PIPERACILLIN SODIUM [Suspect]
     Active Substance: PIPERACILLIN SODIUM
     Dosage: UNK; ;
     Route: 065
     Dates: start: 20210111
  43. PIPERACILLIN SODIUM [Suspect]
     Active Substance: PIPERACILLIN SODIUM
     Dosage: UNK; ;
     Route: 065
     Dates: start: 20210118
  44. PIPERACILLIN SODIUM [Suspect]
     Active Substance: PIPERACILLIN SODIUM
     Dosage: UNK; ;
     Route: 065
     Dates: start: 20210128
  45. PIPERACILLIN SODIUM [Suspect]
     Active Substance: PIPERACILLIN SODIUM
     Dosage: UNK; ;
     Route: 065
     Dates: start: 20210201
  46. PIPERACILLIN SODIUM [Suspect]
     Active Substance: PIPERACILLIN SODIUM
     Dosage: UNK; ;
     Route: 065
  47. RAMUCIRUMAB [Suspect]
     Active Substance: RAMUCIRUMAB
     Indication: Synovial sarcoma
     Dosage: 489.6 MG, QCY; CYCLICAL
     Route: 042
     Dates: start: 20201201, end: 20210310
  48. VANCOMYCIN [Suspect]
     Active Substance: VANCOMYCIN
     Indication: Product used for unknown indication
     Dosage: UNK; ;
     Route: 065
  49. VANCOMYCIN [Suspect]
     Active Substance: VANCOMYCIN
     Dosage: UNK; ;
     Route: 065
     Dates: start: 20201218
  50. VANCOMYCIN [Suspect]
     Active Substance: VANCOMYCIN
     Dosage: UNK; ;
     Route: 065
     Dates: start: 20210111
  51. VANCOMYCIN [Suspect]
     Active Substance: VANCOMYCIN
     Dosage: UNK; ;
     Route: 065
     Dates: start: 20210118
  52. VANCOMYCIN [Suspect]
     Active Substance: VANCOMYCIN
     Dosage: UNK; ;
     Route: 065
     Dates: start: 20210128
  53. VANCOMYCIN [Suspect]
     Active Substance: VANCOMYCIN
     Dosage: UNK; ;
     Route: 065
     Dates: start: 20210201

REACTIONS (7)
  - Haemoglobin decreased [Unknown]
  - Platelet count increased [Unknown]
  - Dyspnoea [Unknown]
  - Pyrexia [Recovered/Resolved]
  - Erythema [Recovering/Resolving]
  - Pain [Recovering/Resolving]
  - Pyrexia [Recovered/Resolved]

NARRATIVE: CASE EVENT DATE: 20201218
